FAERS Safety Report 24059506 (Version 1)
Quarter: 2024Q3

REPORT INFORMATION
  Report Type: Spontaneous
  Country: US (occurrence: US)
  Receive Date: 20240708
  Receipt Date: 20240708
  Transmission Date: 20241017
  Serious: Yes (Hospitalization, Other)
  Sender: HIKMA
  Company Number: US-HIKMA PHARMACEUTICALS-US-H14001-24-06054

PATIENT
  Age: 39 Year
  Sex: Male

DRUGS (3)
  1. DOXORUBICIN [Suspect]
     Active Substance: DOXORUBICIN
     Indication: Non-small cell lung cancer
     Dosage: UNKNOWN
     Route: 065
  2. IFOSFAMIDE [Suspect]
     Active Substance: IFOSFAMIDE
     Indication: Non-small cell lung cancer
     Dosage: UNKNOWN
     Route: 065
  3. MESNA [Suspect]
     Active Substance: MESNA
     Indication: Non-small cell lung cancer
     Dosage: UNKNOWN
     Route: 065

REACTIONS (3)
  - Fanconi syndrome [Recovered/Resolved]
  - Febrile neutropenia [Recovering/Resolving]
  - Pancytopenia [Recovering/Resolving]
